FAERS Safety Report 20561646 (Version 1)
Quarter: 2022Q1

REPORT INFORMATION
  Report Type: Spontaneous
  Country: US (occurrence: None)
  Receive Date: 20220306
  Receipt Date: 20220306
  Transmission Date: 20220423
  Serious: Yes (Disabling)
  Sender: FDA-Public Use
  Company Number: None

PATIENT
  Age: 72 Day
  Sex: Male
  Weight: 0.45 kg

DRUGS (7)
  1. SOLIQUA 100/33 [Suspect]
     Active Substance: INSULIN GLARGINE\LIXISENATIDE
  2. FARXIGA [Concomitant]
     Active Substance: DAPAGLIFLOZIN PROPANEDIOL
  3. METFORMIN [Concomitant]
     Active Substance: METFORMIN HYDROCHLORIDE
  4. TAMSULOSIN [Concomitant]
     Active Substance: TAMSULOSIN
  5. UNSPECIFIED INGREDIENT [Concomitant]
     Active Substance: UNSPECIFIED INGREDIENT
  6. VITAMINS [Concomitant]
  7. SENTRY ADULT [Concomitant]

REACTIONS (6)
  - Visual impairment [None]
  - Dizziness [None]
  - Joint swelling [None]
  - Somnolence [None]
  - Asthenia [None]
  - Confusional state [None]

NARRATIVE: CASE EVENT DATE: 20220302
